FAERS Safety Report 9911746 (Version 2)
Quarter: 2014Q1

REPORT INFORMATION
  Report Type: Spontaneous
  Country: US (occurrence: US)
  Receive Date: 20140219
  Receipt Date: 20140320
  Transmission Date: 20141002
  Serious: Yes (Hospitalization, Other)
  Sender: FDA-Public Use
  Company Number: US-RB-063597-14

PATIENT
  Age: 0 None
  Sex: Male
  Weight: 1.66 kg

DRUGS (5)
  1. SUBOXONE FILM [Suspect]
     Indication: DRUG DEPENDENCE
     Dosage: SUBOXONE FILM
     Route: 064
     Dates: start: 201210, end: 201301
  2. SUBOXONE FILM [Suspect]
     Dosage: SUBOXONE FILM
     Route: 064
     Dates: start: 201301, end: 201303
  3. NICOTINE [Suspect]
     Indication: NICOTINE DEPENDENCE
     Dosage: DOSING DETAILS UNKNOWN; THE NEONATE WAS EXPOSED TO LESS THAN ONE PACK DAILY
     Route: 064
     Dates: start: 2012, end: 20130405
  4. KEPPRA [Suspect]
     Indication: CONVULSION
     Route: 064
     Dates: start: 201303, end: 20130405
  5. PHENOBARBITAL [Suspect]
     Indication: CONVULSION
     Dosage: DOSING DETAILS UNKNOWN
     Route: 064
     Dates: start: 201210, end: 201303

REACTIONS (5)
  - Foetal exposure during pregnancy [Recovered/Resolved]
  - Low birth weight baby [Recovered/Resolved]
  - Poor sucking reflex [Recovered/Resolved]
  - Drug screen positive [Recovered/Resolved]
  - Drug withdrawal syndrome neonatal [Recovered/Resolved]
